FAERS Safety Report 16125943 (Version 1)
Quarter: 2019Q1

REPORT INFORMATION
  Report Type: Spontaneous
  Country: CN (occurrence: CN)
  Receive Date: 20190328
  Receipt Date: 20190328
  Transmission Date: 20190418
  Serious: Yes (Other)
  Sender: FDA-Public Use
  Company Number: CN-BAXTER-2019BAX006078

PATIENT
  Age: 45 Year
  Sex: Female
  Weight: 46 kg

DRUGS (12)
  1. ENDOXAN [Suspect]
     Active Substance: CYCLOPHOSPHAMIDE
     Dosage: DOSE RE-INTRODUCED, ENDOXAN DILUTED WITH NORMAL SALINE
     Route: 042
  2. 0.9% SODIUM CHLORIDE INJECTION [Suspect]
     Active Substance: SODIUM CHLORIDE
     Dosage: DOSE REINTRODUCED WITH TAXOTERE
     Route: 041
  3. ENDOXAN [Suspect]
     Active Substance: CYCLOPHOSPHAMIDE
     Indication: BREAST CANCER FEMALE
     Dosage: 1 TO 3RD CHEMOTHERAPY, ENDOXAN FOR INJECTION DILUTED WITH NORMAL SALINE
     Route: 065
  4. ENDOXAN [Suspect]
     Active Substance: CYCLOPHOSPHAMIDE
     Dosage: CYCLOPHOSPHAMIDE FOR INJECTION (ENDOXAN CTX) 850MG + NS (NORMAL SALINE) 45ML, 4 TH CHEMOTHERAPY
     Route: 042
     Dates: start: 20190129, end: 20190129
  5. 0.9% SODIUM CHLORIDE INJECTION [Suspect]
     Active Substance: SODIUM CHLORIDE
     Dosage: DOCETAXEL INJECTION (TAXOTERE) 105 MG + NS 250ML , 4TH CHEMOTHERAPY
     Route: 041
     Dates: start: 20190129, end: 20190129
  6. 0.9% SODIUM CHLORIDE INJECTION [Suspect]
     Active Substance: SODIUM CHLORIDE
     Dosage: DOSE REINTRODUCED WITH CYCLOPHOSPHAMIDE
     Route: 042
  7. TAXOTERE [Suspect]
     Active Substance: DOCETAXEL
     Indication: BREAST CANCER FEMALE
     Dosage: 1 TO 3 RD CHEMOTHERAPY, TAXOTERE DILUTED WITH NORMAL SALINE
     Route: 065
  8. TAXOTERE [Suspect]
     Active Substance: DOCETAXEL
     Dosage: DOCETAXEL INJECTION (TAXOTERE) 105 MG + NS 250ML , 4TH CHEMOTHERAPY
     Route: 041
     Dates: start: 20190129, end: 20190129
  9. TAXOTERE [Suspect]
     Active Substance: DOCETAXEL
     Dosage: DOSE RE-INTRODUCED. TAXOTERE DILUTED WITH NORMAL SALINE
     Route: 041
  10. 0.9% SODIUM CHLORIDE INJECTION [Suspect]
     Active Substance: SODIUM CHLORIDE
     Dosage: 1 TO 3RD CHEMOTHERAPY,TAXOTERE DILUTED WITH NORMAL SALINE
     Route: 065
  11. 0.9% SODIUM CHLORIDE INJECTION [Suspect]
     Active Substance: SODIUM CHLORIDE
     Indication: MEDICATION DILUTION
     Dosage: 1 TO 3RD CHEMOTHERAPY, ENDOXAN FOR INJECTION DILUTED WITH NORMAL SALINE
     Route: 065
  12. 0.9% SODIUM CHLORIDE INJECTION [Suspect]
     Active Substance: SODIUM CHLORIDE
     Dosage: CYCLOPHOSPHAMIDE FOR INJECTION (ENDOXAN CTX) 850MG + NS 45ML, 4TH CHEMOTHERAPY
     Route: 042
     Dates: start: 20190129, end: 20190129

REACTIONS (1)
  - Agranulocytosis [Recovered/Resolved]

NARRATIVE: CASE EVENT DATE: 20190206
